FAERS Safety Report 6677195-2 (Version None)
Quarter: 2010Q2

REPORT INFORMATION
  Report Type: 
  Country: None (occurrence: None)
  Receive Date: 20100412
  Receipt Date: 20100330
  Transmission Date: 20101027
  Serious: No
  Sender: FDA-Public Use
  Company Number: US-B.I. PHARMACEUTICALS,INC./RIDGEFIELD-2010-BP-02194BP

PATIENT
  Age: 40 Year
  Sex: Male
  Weight: 136.36 kg

DRUGS (3)
  1. VIRAMUNE [Suspect]
     Indication: HIV INFECTION
     Dosage: 200 MG
     Dates: start: 20020101
  2. VIRAMUNE [Suspect]
     Dosage: 400 MG
  3. TRUVADA [Concomitant]
     Dates: start: 20020101

REACTIONS (2)
  - DRUG INTOLERANCE [None]
  - DRUG LEVEL DECREASED [None]
